FAERS Safety Report 7439816-6 (Version None)
Quarter: 2011Q2

REPORT INFORMATION
  Report Type: 
  Country: None (occurrence: None)
  Receive Date: 20110427
  Receipt Date: 20110413
  Transmission Date: 20111010
  Serious: Yes (Disabling, Other)
  Sender: FDA-Public Use
  Company Number: CA-JNJFOC-20110406445

PATIENT
  Sex: Female
  Weight: 66 kg

DRUGS (2)
  1. PURINETHOL [Concomitant]
     Indication: CROHN'S DISEASE
     Route: 048
  2. REMICADE [Suspect]
     Indication: CROHN'S DISEASE
     Route: 042

REACTIONS (3)
  - POLYARTHRITIS [None]
  - ENTHESOPATHY [None]
  - LUPUS-LIKE SYNDROME [None]
